FAERS Safety Report 9321468 (Version 1)
Quarter: 2013Q2

REPORT INFORMATION
  Report Type: Spontaneous
  Country: US (occurrence: None)
  Receive Date: 20130531
  Receipt Date: 20130531
  Transmission Date: 20140414
  Serious: Yes (Other)
  Sender: FDA-Public Use
  Company Number: None

PATIENT
  Age: 56 Year
  Sex: Female

DRUGS (1)
  1. TECFIDERA [Suspect]
     Dosage: 60 UD ORAL
     Dates: start: 20130502, end: 20130530

REACTIONS (6)
  - Vomiting [None]
  - Nausea [None]
  - Pruritus [None]
  - Hyperhidrosis [None]
  - Hot flush [None]
  - Rash [None]
